FAERS Safety Report 4678649-0 (Version None)
Quarter: 2005Q2

REPORT INFORMATION
  Report Type: 
  Country: None (occurrence: None)
  Receive Date: 20050527
  Receipt Date: 20050516
  Transmission Date: 20051028
  Serious: Yes (Other)
  Sender: FDA-Public Use
  Company Number: 2005075688

PATIENT
  Age: 43 Year
  Sex: Female

DRUGS (17)
  1. FLAGYL [Suspect]
     Indication: ILL-DEFINED DISORDER
  2. REMICADE [Suspect]
     Indication: COLITIS ULCERATIVE
     Dosage: (5 MG/KG), INTRAVENOUS
     Route: 042
     Dates: start: 20030401
  3. REMICADE [Suspect]
     Indication: CROHN'S DISEASE
     Dosage: (5 MG/KG), INTRAVENOUS
     Route: 042
     Dates: start: 20030401
  4. REMICADE [Suspect]
     Indication: COLITIS ULCERATIVE
     Dosage: (5 MG/KG), INTRAVENOUS
     Route: 042
     Dates: start: 20030701
  5. REMICADE [Suspect]
     Indication: CROHN'S DISEASE
     Dosage: (5 MG/KG), INTRAVENOUS
     Route: 042
     Dates: start: 20030701
  6. REMICADE [Suspect]
     Indication: COLITIS ULCERATIVE
     Dosage: (5 MG/KG), INTRAVENOUS
     Route: 042
     Dates: start: 20040628
  7. REMICADE [Suspect]
     Indication: CROHN'S DISEASE
     Dosage: (5 MG/KG), INTRAVENOUS
     Route: 042
     Dates: start: 20040628
  8. REMICADE [Suspect]
     Indication: COLITIS ULCERATIVE
     Dosage: (5 MG/KG), INTRAVENOUS
     Route: 042
     Dates: start: 20041201
  9. REMICADE [Suspect]
     Indication: CROHN'S DISEASE
     Dosage: (5 MG/KG), INTRAVENOUS
     Route: 042
     Dates: start: 20041201
  10. REMICADE [Suspect]
     Indication: COLITIS ULCERATIVE
     Dosage: (5 MG/KG), INTRAVENOUS
     Route: 042
     Dates: start: 20050107
  11. REMICADE [Suspect]
     Indication: CROHN'S DISEASE
     Dosage: (5 MG/KG), INTRAVENOUS
     Route: 042
     Dates: start: 20050107
  12. BALSALAZIDE SODIUM (BALSALAZIDE SODIUM) [Suspect]
     Indication: ILL-DEFINED DISORDER
  13. MERCAPTOPURINE [Suspect]
     Indication: ILL-DEFINED DISORDER
  14. ASACOL [Concomitant]
  15. ENTOCORT (BUDESONIDE) [Concomitant]
  16. PROTONIX [Concomitant]
  17. METRONIDAZOLE [Concomitant]

REACTIONS (20)
  - BLOOD LACTATE DEHYDROGENASE DECREASED [None]
  - COUGH [None]
  - CROHN'S DISEASE [None]
  - DIARRHOEA [None]
  - DISEASE RECURRENCE [None]
  - DIVERTICULUM INTESTINAL [None]
  - DRUG INEFFECTIVE [None]
  - GASTRIC DISORDER [None]
  - GASTROOESOPHAGEAL REFLUX DISEASE [None]
  - HAEMORRHOIDS [None]
  - INFLAMMATION [None]
  - INSOMNIA [None]
  - LARGE INTESTINAL ULCER [None]
  - OPTIC NEURITIS [None]
  - ORAL CANDIDIASIS [None]
  - OSTEOPENIA [None]
  - PLATELET COUNT INCREASED [None]
  - RECTAL HAEMORRHAGE [None]
  - RHINORRHOEA [None]
  - THROAT IRRITATION [None]
